FAERS Safety Report 7488746-2 (Version None)
Quarter: 2011Q2

REPORT INFORMATION
  Report Type: 
  Country: None (occurrence: None)
  Receive Date: 20110518
  Receipt Date: 20110505
  Transmission Date: 20111010
  Serious: Yes (Other)
  Sender: FDA-Public Use
  Company Number: US-CELGENEUS-163-21880-11050826

PATIENT
  Sex: Female
  Weight: 79.45 kg

DRUGS (1)
  1. REVLIMID [Suspect]
     Indication: MULTIPLE MYELOMA
     Dosage: 6.4286 MILLIGRAM
     Route: 048
     Dates: start: 20110401

REACTIONS (5)
  - CONSTIPATION [None]
  - ASTHENIA [None]
  - BLOOD GLUCOSE INCREASED [None]
  - FATIGUE [None]
  - CHEST DISCOMFORT [None]
